FAERS Safety Report 20710653 (Version 10)
Quarter: 2023Q1

REPORT INFORMATION
  Report Type: Spontaneous
  Country: US (occurrence: US)
  Receive Date: 20220414
  Receipt Date: 20230320
  Transmission Date: 20230417
  Serious: No
  Sender: FDA-Public Use
  Company Number: US-PFIZER INC-202101220810

PATIENT
  Age: 49 Year
  Sex: Female

DRUGS (3)
  1. IBRANCE [Suspect]
     Active Substance: PALBOCICLIB
     Indication: Breast cancer female
     Dosage: 125 MG, CYCLIC (TAKE 1 TABLET BY MOUTH DAILY ON DAYS 1-21 THEN 7 DAYS OFF EACH 28 DAY REGIMEN)
     Route: 048
     Dates: start: 20191206
  2. IBRANCE [Suspect]
     Active Substance: PALBOCICLIB
     Dosage: 125 MG, CYCLIC (TAKE 1 TABLET BY MOUTH DAILY ON DAYS 1-21 THEN 7 DAYS OFF EACH 28 DAY REGIMEN)
     Route: 048
     Dates: start: 20200610
  3. VITAMIN B12 [Concomitant]
     Active Substance: CYANOCOBALAMIN
     Dosage: 500 UG

REACTIONS (7)
  - Fatigue [Not Recovered/Not Resolved]
  - Nausea [Unknown]
  - Alopecia [Unknown]
  - Dry skin [Not Recovered/Not Resolved]
  - Menopausal disorder [Unknown]
  - Dyspnoea [Unknown]
  - Diarrhoea [Unknown]
